FAERS Safety Report 4713612-2 (Version None)
Quarter: 2005Q3

REPORT INFORMATION
  Report Type: 
  Country: None (occurrence: None)
  Receive Date: 20050711
  Receipt Date: 20050627
  Transmission Date: 20060218
  Serious: Yes (Other)
  Sender: FDA-Public Use
  Company Number: 2004217372BR

PATIENT
  Age: 21 Year
  Sex: Female

DRUGS (4)
  1. DEPO-PROVERA [Suspect]
     Indication: CONTRACEPTION
     Dosage: 150 MG (150 MG, TRIMESTRAL, 1ST INJECTION), INTRAMUSCULAR
     Route: 030
     Dates: start: 20030101, end: 20030101
  2. DEPO-PROVERA [Suspect]
     Dosage: 150 MG (150 MG, LAST INJECTION), INTRAMUSCULAR
     Route: 030
     Dates: start: 20040401, end: 20040401
  3. DEPO-PROVERA [Suspect]
     Dosage: 150 MG (150 MG, RE-START INJECTION), INTRAMUSCULAR
     Route: 030
     Dates: start: 20041125, end: 20041125
  4. DEPO-PROVERA [Suspect]
     Dosage: 150 MG (150 MG, MOST RECENT INJECTION), INTRAMUSCULAR
     Route: 030
     Dates: start: 20050522, end: 20050522

REACTIONS (5)
  - ABORTION SPONTANEOUS [None]
  - AMENORRHOEA [None]
  - DRUG EXPOSURE DURING PREGNANCY [None]
  - PREGNANCY WITH INJECTABLE CONTRACEPTIVE [None]
  - VAGINAL HAEMORRHAGE [None]
